FAERS Safety Report 8021694-8 (Version None)
Quarter: 2012Q1

REPORT INFORMATION
  Report Type: 
  Country: None (occurrence: None)
  Receive Date: 20120104
  Receipt Date: 20111228
  Transmission Date: 20120608
  Serious: Yes (Hospitalization)
  Sender: FDA-Public Use
  Company Number: PHFR2011GB007410

PATIENT
  Sex: Male

DRUGS (12)
  1. STALEVO 100 [Concomitant]
     Indication: PARKINSON'S DISEASE
     Dosage: 25/100+200 MG
     Route: 048
  2. DILTIAZEM HCL [Concomitant]
     Dosage: 60 MG, BID
     Route: 048
  3. FENTANYL [Concomitant]
     Indication: PAIN
     Dosage: 12 MCG/72 HRS
  4. CALCICHEW D3 [Concomitant]
     Route: 048
  5. CLOZARIL [Suspect]
     Indication: HALLUCINATION
     Dosage: 25 MG, UNK
     Route: 048
     Dates: start: 20110209
  6. CLOZARIL [Suspect]
     Indication: SCHIZOPHRENIA
  7. LANSOPRAZOLE [Concomitant]
     Dosage: 15 MG, QD
  8. RIVASTIGMINE [Concomitant]
     Indication: DEMENTIA
     Dosage: 4.5 MG, BID
  9. CLONAZEPAM [Concomitant]
     Indication: SLEEP DISORDER
     Dosage: 500 MG, UNK
  10. SERTRALINE HYDROCHLORIDE [Concomitant]
     Indication: DEPRESSION
     Dosage: 50 MG, UNK
     Route: 048
  11. ASPIRIN [Concomitant]
     Dosage: 75 MG, QD
     Route: 048
  12. SALMETEROL [Concomitant]
     Indication: ASTHMA
     Dosage: 2 DF, UNK

REACTIONS (1)
  - MOBILITY DECREASED [None]
